FAERS Safety Report 8533887-1 (Version None)
Quarter: 2012Q3

REPORT INFORMATION
  Report Type: 
  Country: None (occurrence: None)
  Receive Date: 20120724
  Receipt Date: 20120717
  Transmission Date: 20120928
  Serious: Yes (Death)
  Sender: FDA-Public Use
  Company Number: FR-ROCHE-1084167

PATIENT
  Age: 58 Year
  Sex: Male
  Weight: 70 kg

DRUGS (6)
  1. COPEGUS [Suspect]
     Route: 048
     Dates: start: 20120201
  2. BIPERIDYS [Concomitant]
  3. ALUMINUM HYDROXIDE AND MAGNESIUM TRISILICATE [Concomitant]
  4. PEGASYS [Suspect]
     Dates: start: 20120201
  5. PEGASYS [Suspect]
     Indication: HEPATITIS C
     Route: 058
     Dates: start: 20101101, end: 20111101
  6. COPEGUS [Suspect]
     Indication: HEPATITIS C
     Dates: start: 20101101, end: 20111101

REACTIONS (1)
  - CYTOLYTIC HEPATITIS [None]
